FAERS Safety Report 13762171 (Version 1)
Quarter: 2017Q3

REPORT INFORMATION
  Report Type: Spontaneous
  Country: US (occurrence: US)
  Receive Date: 20170718
  Receipt Date: 20170718
  Transmission Date: 20171127
  Serious: Yes (Death, Hospitalization)
  Sender: FDA-Public Use
  Company Number: US-STRIDES ARCOLAB LIMITED-2017SP000844

PATIENT

DRUGS (2)
  1. MYCOPHENOLATE MOFETIL. [Suspect]
     Active Substance: MYCOPHENOLATE MOFETIL
     Indication: RENAL TRANSPLANT
     Dosage: UNK
  2. TACROLIMUS. [Suspect]
     Active Substance: TACROLIMUS
     Indication: RENAL TRANSPLANT
     Dosage: UNK

REACTIONS (14)
  - Cerebral infarction [Unknown]
  - Oedema [Unknown]
  - Bradycardia [Unknown]
  - Mental status changes [Unknown]
  - Confusional state [Unknown]
  - Renal impairment [Unknown]
  - Unresponsive to stimuli [Unknown]
  - Encephalitis [Fatal]
  - Hypersomnia [Unknown]
  - Acanthamoeba infection [Fatal]
  - Ischaemic stroke [Unknown]
  - Intracranial mass [Unknown]
  - Pancytopenia [Unknown]
  - Pyrexia [Unknown]
